FAERS Safety Report 15657847 (Version 1)
Quarter: 2018Q4

REPORT INFORMATION
  Report Type: Spontaneous
  Country: IT (occurrence: IT)
  Receive Date: 20181126
  Receipt Date: 20181126
  Transmission Date: 20190205
  Serious: Yes (Other)
  Sender: FDA-Public Use
  Company Number: IT-SA-2017SA134206

PATIENT
  Age: 79 Year
  Sex: Female

DRUGS (9)
  1. ACETYLSALICYLIC ACID [Concomitant]
     Active Substance: ASPIRIN
  2. TRIATEC [RAMIPRIL] [Concomitant]
  3. EUTIROX [Concomitant]
     Active Substance: LEVOTHYROXINE SODIUM
     Indication: HYPOTHYROIDISM
  4. HUMALOG [Suspect]
     Active Substance: INSULIN LISPRO
     Indication: TYPE 1 DIABETES MELLITUS
     Dosage: 19 IU,QD
     Route: 058
     Dates: start: 20170101, end: 20170328
  5. TORVAST [Concomitant]
     Active Substance: ATORVASTATIN
  6. LANTUS [Suspect]
     Active Substance: INSULIN GLARGINE
     Indication: TYPE 1 DIABETES MELLITUS
     Dosage: 16 IU,QD
     Route: 058
     Dates: start: 20170101, end: 20170328
  7. PALEXIA [Concomitant]
     Active Substance: TAPENTADOL HYDROCHLORIDE
  8. XANAX [Concomitant]
     Active Substance: ALPRAZOLAM
  9. CYMBALTA [Concomitant]
     Active Substance: DULOXETINE HYDROCHLORIDE

REACTIONS (1)
  - Hypoglycaemic coma [Unknown]

NARRATIVE: CASE EVENT DATE: 20170328
